FAERS Safety Report 9207296 (Version 1)
Quarter: 2013Q1

REPORT INFORMATION
  Report Type: Spontaneous
  Country: US (occurrence: None)
  Receive Date: 20120718
  Receipt Date: 20120718
  Transmission Date: 20140127
  Serious: Yes (Other)
  Sender: FDA-Public Use
  Company Number: 163-50794-11062099

PATIENT
  Age: 84 Year
  Sex: Male
  Weight: 79.1 kg

DRUGS (7)
  1. VIDAZA [Suspect]
     Indication: MYELODYSPLASTIC SYNDROME
     Dosage: X 7 EVERY 28 DAYS
     Route: 058
     Dates: start: 20100831, end: 20101213
  2. COREG (CARVEDILOL) (6.25 MILLIGRAM, TABLETS) [Concomitant]
  3. DIGOXIN (DIGOXIN) (0.125 MILLIGRAM, TABLETS [Concomitant]
  4. LASIX (FUROSEMIDE) (20 MILLIGRAM, TABLETS ) [Concomitant]
  5. SOTALOL HCL (SOTALOL HYDROCHLORIDE) (80 MILLIGRAM TABLETS) [Concomitant]
  6. SPIRIVA (HANDIHALER (TIOTROPIUM BROMIDE) [Concomitant]
  7. SYMBICORT (SYMBICORT TURBUHALER ^DRACO^ (AEROSOL FOR INHALATION) [Concomitant]

REACTIONS (2)
  - Pancytopenia [None]
  - Drug ineffective [None]
